FAERS Safety Report 4321188-7 (Version None)
Quarter: 2004Q1

REPORT INFORMATION
  Report Type: 
  Country: None (occurrence: None)
  Receive Date: 20040322
  Receipt Date: 20031009
  Transmission Date: 20041129
  Serious: Yes (Hospitalization, Disabling, Other)
  Sender: FDA-Public Use
  Company Number: WAES 0310USA01297

PATIENT
  Age: 54 Year
  Sex: Female
  Weight: 108 kg

DRUGS (18)
  1. AMITRIPTYLINE HYDROCHLORIDE [Concomitant]
     Indication: INSOMNIA
     Dates: start: 20010531, end: 20011030
  2. AMITRIPTYLINE HYDROCHLORIDE [Concomitant]
     Dates: start: 20011031
  3. AMITRIPTYLINE HYDROCHLORIDE [Concomitant]
     Dates: start: 20010514, end: 20010530
  4. AMITRIPTYLINE HYDROCHLORIDE [Concomitant]
     Indication: PAIN
     Dates: start: 20010531, end: 20011030
  5. AMITRIPTYLINE HYDROCHLORIDE [Concomitant]
     Dates: start: 20011031
  6. AMITRIPTYLINE HYDROCHLORIDE [Concomitant]
     Dates: start: 20010514, end: 20010530
  7. ANALGESIC OR ANESTHETIC (UNSPECIFIED) [Concomitant]
     Indication: PAIN
  8. ATENOLOL [Concomitant]
  9. LIPITOR [Concomitant]
     Indication: BLOOD CHOLESTEROL INCREASED
     Dates: start: 19990310, end: 20020301
  10. CELEBREX [Concomitant]
     Dates: end: 20010530
  11. PREMARIN [Concomitant]
     Indication: HORMONE REPLACEMENT THERAPY
     Dates: start: 19970101, end: 20020701
  12. HYDRODIURIL [Concomitant]
     Route: 048
  13. ALTACE [Concomitant]
     Indication: HYPERTENSION
     Dates: start: 20000101, end: 20020601
  14. VIOXX [Suspect]
     Indication: ARTHRITIS
     Route: 048
     Dates: start: 20010530, end: 20020301
  15. VIOXX [Suspect]
     Route: 048
     Dates: start: 20001101, end: 20010101
  16. VIOXX [Suspect]
     Indication: ARTHRALGIA
     Route: 048
     Dates: start: 20010530, end: 20020301
  17. VIOXX [Suspect]
     Route: 048
     Dates: start: 20001101, end: 20010101
  18. ZOLOFT [Concomitant]
     Indication: DEPRESSION
     Dates: start: 19991027

REACTIONS (47)
  - ANXIETY [None]
  - AORTIC STENOSIS [None]
  - AORTIC VALVE INCOMPETENCE [None]
  - ARTHRALGIA [None]
  - BACK PAIN [None]
  - BURSITIS [None]
  - CARDIAC DISORDER [None]
  - CARPAL TUNNEL SYNDROME [None]
  - CEREBROVASCULAR ACCIDENT [None]
  - CHEST PAIN [None]
  - CRYING [None]
  - DEAFNESS UNILATERAL [None]
  - DECREASED APPETITE [None]
  - DEPRESSION [None]
  - DIZZINESS [None]
  - DROOLING [None]
  - EMPHYSEMA [None]
  - FATIGUE [None]
  - FEEDING DISORDER [None]
  - FIBROMYALGIA [None]
  - HEADACHE [None]
  - HYPERHIDROSIS [None]
  - HYPERLIPIDAEMIA [None]
  - HYPERTENSION [None]
  - HYPOAESTHESIA [None]
  - IMPAIRED WORK ABILITY [None]
  - INSOMNIA [None]
  - LACUNAR INFARCTION [None]
  - MEMORY IMPAIRMENT [None]
  - MENISCUS LESION [None]
  - MITRAL VALVE INCOMPETENCE [None]
  - NAUSEA [None]
  - OSTEOARTHRITIS [None]
  - PAIN [None]
  - PERIPHERAL VASCULAR DISORDER [None]
  - PRODUCTIVE COUGH [None]
  - REBOUND HYPERTENSION [None]
  - RHINORRHOEA [None]
  - SINUSITIS [None]
  - SPEECH DISORDER [None]
  - SPONDYLOLISTHESIS ACQUIRED [None]
  - SPONDYLOLYSIS [None]
  - TREATMENT NONCOMPLIANCE [None]
  - TRICUSPID VALVE INCOMPETENCE [None]
  - VISION BLURRED [None]
  - VISUAL DISTURBANCE [None]
  - WEIGHT INCREASED [None]
